FAERS Safety Report 9928518 (Version 1)
Quarter: 2014Q1

REPORT INFORMATION
  Report Type: Spontaneous
  Country: US (occurrence: None)
  Receive Date: 20140226
  Receipt Date: 20140226
  Transmission Date: 20141002
  Serious: Yes (Hospitalization)
  Sender: FDA-Public Use
  Company Number: None

PATIENT
  Age: 71 Year
  Sex: Male
  Weight: 111.7 kg

DRUGS (1)
  1. SUNITINAB MALATE [Suspect]
     Dates: end: 20140224

REACTIONS (3)
  - Blood phosphorus decreased [None]
  - Appetite disorder [None]
  - Hypophagia [None]
